FAERS Safety Report 6451353-4 (Version None)
Quarter: 2009Q4

REPORT INFORMATION
  Report Type: 
  Country: None (occurrence: None)
  Receive Date: 20091123
  Receipt Date: 20091110
  Transmission Date: 20100525
  Serious: Yes (Hospitalization)
  Sender: FDA-Public Use
  Company Number: FR-JNJFOC-20091106256

PATIENT
  Sex: Male

DRUGS (8)
  1. TOPALGIC [Suspect]
     Indication: PAIN
     Route: 048
  2. DEXAMETHASONE [Suspect]
     Indication: DRUG USE FOR UNKNOWN INDICATION
     Route: 065
     Dates: start: 20090714, end: 20090827
  3. LORAZEPAM [Suspect]
     Indication: DRUG USE FOR UNKNOWN INDICATION
     Route: 048
  4. SAW PALMETTO [Concomitant]
     Route: 065
  5. DAFALGAN [Concomitant]
     Route: 065
  6. CASODEX [Concomitant]
     Route: 065
  7. ARANESP [Concomitant]
     Route: 065
  8. ZOMETA [Concomitant]
     Route: 065

REACTIONS (2)
  - ABNORMAL BEHAVIOUR [None]
  - CONFUSIONAL STATE [None]
